FAERS Safety Report 15877421 (Version 1)
Quarter: 2019Q1

REPORT INFORMATION
  Report Type: Spontaneous
  Country: US (occurrence: US)
  Receive Date: 20190128
  Receipt Date: 20190128
  Transmission Date: 20190417
  Serious: Yes (Other)
  Sender: FDA-Public Use
  Company Number: US-COLGATE PALMOLIVE COMPANY-20190100200

PATIENT
  Sex: Male

DRUGS (2)
  1. COLGATE TOTAL ADVANCED DEEP CLEAN [Suspect]
     Active Substance: SODIUM FLUORIDE\TRICLOSAN
     Dosage: UNKNOWN DOSE
  2. SOFTSOAP ANTIBACTERIAL HAND [Suspect]
     Active Substance: TRICLOSAN

REACTIONS (1)
  - Skin cancer [Unknown]
